FAERS Safety Report 16103590 (Version 1)
Quarter: 2019Q1

REPORT INFORMATION
  Report Type: Spontaneous
  Country: US (occurrence: US)
  Receive Date: 20190322
  Receipt Date: 20190322
  Transmission Date: 20190418
  Serious: No
  Sender: FDA-Public Use
  Company Number: US-JNJFOC-20190300090

PATIENT
  Age: 60 Year
  Sex: Male
  Weight: 88.45 kg

DRUGS (3)
  1. LEVAQUIN [Suspect]
     Active Substance: LEVOFLOXACIN
     Indication: INFECTED CYST
     Route: 048
     Dates: start: 20190222, end: 201902
  2. DILAUDID [Concomitant]
     Active Substance: HYDROMORPHONE HYDROCHLORIDE
     Route: 065
  3. CELEBREX [Concomitant]
     Active Substance: CELECOXIB
     Route: 065

REACTIONS (2)
  - Tendon pain [Recovering/Resolving]
  - Tendon disorder [Recovering/Resolving]

NARRATIVE: CASE EVENT DATE: 20190224
